FAERS Safety Report 18500932 (Version 1)
Quarter: 2020Q4

REPORT INFORMATION
  Report Type: Spontaneous
  Country: RO (occurrence: RO)
  Receive Date: 20201113
  Receipt Date: 20201113
  Transmission Date: 20210114
  Serious: Yes (Hospitalization)
  Sender: FDA-Public Use
  Company Number: RO-ABBVIE-20K-135-3645106-00

PATIENT
  Age: 54 Year
  Sex: Male

DRUGS (1)
  1. VENETOCLAX. [Suspect]
     Active Substance: VENETOCLAX
     Indication: CHRONIC LYMPHOCYTIC LEUKAEMIA
     Route: 048
     Dates: start: 20200822, end: 20200825

REACTIONS (8)
  - Thrombocytopenia [Unknown]
  - Pyrexia [Recovering/Resolving]
  - Renal failure [Recovered/Resolved]
  - Lymphocytosis [Recovering/Resolving]
  - Blood urea increased [Unknown]
  - Bladder disorder [Unknown]
  - Hepatocellular injury [Recovered/Resolved]
  - Anaemia [Unknown]

NARRATIVE: CASE EVENT DATE: 20200825
